FAERS Safety Report 25844031 (Version 2)
Quarter: 2025Q4

REPORT INFORMATION
  Report Type: Report from Study
  Country: US (occurrence: None)
  Receive Date: 20250925
  Receipt Date: 20251226
  Transmission Date: 20260118
  Serious: Yes (Other)
  Sender: CHIESI
  Company Number: US-CHIESI-2025CHF05869

PATIENT
  Sex: Male
  Weight: 38.101 kg

DRUGS (2)
  1. BIRCH BARK\HERBALS [Suspect]
     Active Substance: BIRCH BARK\HERBALS
     Indication: Epidermolysis bullosa
     Dosage: UNK, PRN
     Route: 048
     Dates: start: 20241204
  2. BIRCH BARK\HERBALS [Suspect]
     Active Substance: BIRCH BARK\HERBALS
     Dosage: UNK UNK, PRN
     Route: 048

REACTIONS (6)
  - Wound infection staphylococcal [Not Recovered/Not Resolved]
  - Skin discharge [Recovering/Resolving]
  - Skin discharge [Recovering/Resolving]
  - Dry skin [Not Recovered/Not Resolved]
  - Application site pruritus [Not Recovered/Not Resolved]
  - Product administration interrupted [Recovered/Resolved]
